FAERS Safety Report 9746263 (Version 1)
Quarter: 2013Q4

REPORT INFORMATION
  Report Type: Spontaneous
  Country: SA (occurrence: None)
  Receive Date: 20131209
  Receipt Date: 20131209
  Transmission Date: 20140711
  Serious: Yes (Disabling)
  Sender: FDA-Public Use
  Company Number: None

PATIENT
  Age: 45 Year
  Sex: Female
  Weight: 78 kg

DRUGS (1)
  1. MEFLOQUINE [Suspect]
     Indication: MALARIA
     Dosage: 1 PIL PER WEEK
     Route: 048
     Dates: start: 20130905, end: 20130905

REACTIONS (13)
  - Insomnia [None]
  - Anxiety [None]
  - Panic reaction [None]
  - Paranoia [None]
  - Palpitations [None]
  - Depression [None]
  - Disturbance in attention [None]
  - Memory impairment [None]
  - Myalgia [None]
  - Musculoskeletal stiffness [None]
  - Decreased interest [None]
  - Vision blurred [None]
  - Hearing impaired [None]
